FAERS Safety Report 6469985-6 (Version None)
Quarter: 2009Q4

REPORT INFORMATION
  Report Type: 
  Country: None (occurrence: None)
  Receive Date: 20091203
  Receipt Date: 20080423
  Transmission Date: 20100525
  Serious: Yes (Hospitalization)
  Sender: FDA-Public Use
  Company Number: FR-ELI_LILLY_AND_COMPANY-FR200712004172

PATIENT
  Sex: Male

DRUGS (3)
  1. ZYPREXA [Suspect]
     Indication: PSYCHOTIC DISORDER
     Dosage: 5 MG, DAILY (1/D)
     Route: 048
     Dates: start: 20060601, end: 20070805
  2. ZYPREXA [Suspect]
     Dates: start: 20070801, end: 20070801
  3. ZYPREXA [Suspect]
     Dates: start: 20071016

REACTIONS (7)
  - AMNESIA [None]
  - EPILEPSY [None]
  - EYE ROLLING [None]
  - LOSS OF CONSCIOUSNESS [None]
  - PALLOR [None]
  - PNEUMONIA LEGIONELLA [None]
  - RHABDOMYOLYSIS [None]
